FAERS Safety Report 24795932 (Version 2)
Quarter: 2025Q1

REPORT INFORMATION
  Report Type: Spontaneous
  Country: JP (occurrence: JP)
  Receive Date: 20250101
  Receipt Date: 20250128
  Transmission Date: 20250409
  Serious: Yes (Death, Other)
  Sender: ROCHE
  Company Number: JP-CHUGAI-2024045246

PATIENT
  Age: 80 Year
  Sex: Male
  Weight: 57.4 kg

DRUGS (12)
  1. TECENTRIQ [Suspect]
     Active Substance: ATEZOLIZUMAB
     Indication: Hepatocellular carcinoma
     Route: 040
     Dates: start: 20241204, end: 20241204
  2. AVASTIN [Suspect]
     Active Substance: BEVACIZUMAB
     Indication: Hepatocellular carcinoma
     Route: 040
     Dates: start: 20241204, end: 20241204
  3. VONOPRAZAN FUMARATE [Concomitant]
     Active Substance: VONOPRAZAN FUMARATE
     Route: 065
     Dates: start: 20241122
  4. URSODIOL [Concomitant]
     Active Substance: URSODIOL
     Route: 048
  5. DIETARY SUPPLEMENT\PROBIOTICS [Concomitant]
     Active Substance: DIETARY SUPPLEMENT\PROBIOTICS NOS
     Route: 048
  6. FEBUXOSTAT [Concomitant]
     Active Substance: FEBUXOSTAT
     Route: 065
  7. MAGNESIUM OXIDE [Concomitant]
     Active Substance: MAGNESIUM OXIDE
     Route: 065
  8. REBAMIPIDE [Concomitant]
     Active Substance: REBAMIPIDE
     Route: 065
  9. AMLODIPINE BESYLATE [Concomitant]
     Active Substance: AMLODIPINE BESYLATE
     Route: 065
  10. BIO-THREE [Concomitant]
     Active Substance: HERBALS
     Route: 048
  11. MAGNESIUM OXIDE [Concomitant]
     Active Substance: MAGNESIUM OXIDE
     Route: 065
  12. LIVACT [ISOLEUCINE;LEUCINE;VALINE] [Concomitant]
     Route: 048

REACTIONS (6)
  - Abdominal pain upper [Unknown]
  - Diarrhoea [Unknown]
  - Pneumonia aspiration [Unknown]
  - Portal hypertensive gastropathy [Unknown]
  - Hepatocellular carcinoma [Fatal]
  - Cytokine release syndrome [Fatal]

NARRATIVE: CASE EVENT DATE: 20241212
